FAERS Safety Report 7555250-2 (Version None)
Quarter: 2011Q2

REPORT INFORMATION
  Report Type: 
  Country: None (occurrence: None)
  Receive Date: 20110617
  Receipt Date: 20110614
  Transmission Date: 20111010
  Serious: Yes (Life-Threatening, Hospitalization)
  Sender: FDA-Public Use
  Company Number: PHHY2011BE46946

PATIENT
  Sex: Male

DRUGS (2)
  1. SANDOSTATIN [Suspect]
     Indication: PROPHYLAXIS
     Dosage: 0.5 MG, UNK
     Route: 058
     Dates: start: 20110526
  2. PANTOPRAZOLE [Concomitant]
     Indication: GASTRIC DISORDER

REACTIONS (2)
  - SYNCOPE [None]
  - ATRIOVENTRICULAR BLOCK COMPLETE [None]
